FAERS Safety Report 6731999-6 (Version None)
Quarter: 2010Q2

REPORT INFORMATION
  Report Type: 
  Country: None (occurrence: None)
  Receive Date: 20100519
  Receipt Date: 20100507
  Transmission Date: 20101027
  Serious: Yes (Other)
  Sender: FDA-Public Use
  Company Number: PHHY2010US29847

PATIENT
  Sex: Female

DRUGS (2)
  1. VIVELLE-DOT [Suspect]
     Dosage: 0.25 MG, UNK
     Route: 062
  2. PROMETRIUM [Suspect]
     Dosage: 200 MG, UNK

REACTIONS (1)
  - BLINDNESS [None]
